FAERS Safety Report 5627428-6 (Version None)
Quarter: 2008Q1

REPORT INFORMATION
  Report Type: 
  Country: None (occurrence: None)
  Receive Date: 20080214
  Receipt Date: 20080214
  Transmission Date: 20080703
  Serious: Yes (Other)
  Sender: FDA-Public Use
  Company Number: None

PATIENT
  Sex: Male

DRUGS (2)
  1. TENORETIC 100 [Suspect]
  2. BLACK LICORICE [Interacting]

REACTIONS (2)
  - BLOOD POTASSIUM DECREASED [None]
  - PALPITATIONS [None]
